FAERS Safety Report 23639516 (Version 1)
Quarter: 2024Q1

REPORT INFORMATION
  Report Type: Spontaneous
  Country: FR (occurrence: FR)
  Receive Date: 20240316
  Receipt Date: 20240316
  Transmission Date: 20240409
  Serious: Yes (Hospitalization)
  Sender: FDA-Public Use
  Company Number: None

PATIENT
  Age: 33 Year
  Sex: Female

DRUGS (2)
  1. AMOXICILLIN [Suspect]
     Active Substance: AMOXICILLIN
     Indication: Ear infection
     Dosage: TOTAL
     Route: 048
     Dates: start: 20231222
  2. MORNIFLUMATE [Suspect]
     Active Substance: MORNIFLUMATE
     Indication: Ear infection
     Dosage: TOTAL
     Route: 048
     Dates: start: 20231222

REACTIONS (1)
  - Hypersensitivity [Recovered/Resolved]

NARRATIVE: CASE EVENT DATE: 20231222
